FAERS Safety Report 8762714 (Version 1)
Quarter: 2012Q4

REPORT INFORMATION
  Report Type: Report from Study
  Country: US (occurrence: US)
  Receive Date: 20120831
  Receipt Date: 20120831
  Transmission Date: 20130627
  Serious: Yes (Other)
  Sender: FDA-Public Use
  Company Number: US-ROCHE-1104792

PATIENT
  Age: 72 Year
  Sex: Female

DRUGS (2)
  1. RANIBIZUMAB [Suspect]
     Indication: EYE HAEMORRHAGE
     Route: 042
     Dates: start: 20120430
  2. RANIBIZUMAB [Suspect]
     Indication: GLAUCOMA

REACTIONS (3)
  - Eye haemorrhage [Unknown]
  - Exophthalmos [Unknown]
  - Eye pain [Unknown]
